FAERS Safety Report 15090505 (Version 1)
Quarter: 2018Q2

REPORT INFORMATION
  Report Type: Spontaneous
  Country: DE (occurrence: DE)
  Receive Date: 20180629
  Receipt Date: 20180629
  Transmission Date: 20180711
  Serious: Yes (Other)
  Sender: FDA-Public Use
  Company Number: DE-ALLERGAN-1832865US

PATIENT
  Age: 1 Day
  Sex: Female
  Weight: 2.11 kg

DRUGS (2)
  1. CITALOPRAM HYDROBROMIDE - BP [Suspect]
     Active Substance: CITALOPRAM HYDROBROMIDE
     Indication: MATERNAL EXPOSURE TIMING UNSPECIFIED
     Dosage: 20 [MG/D ]/ FROM WEEK 0-15, AND AGAIN FROM WEEK 32 UNTIL DELIVERY
     Route: 064
     Dates: start: 20161007, end: 20170626
  2. FEMIBION [Concomitant]
     Active Substance: VITAMINS
     Indication: MATERNAL EXPOSURE TIMING UNSPECIFIED
     Dosage: UNK UNK, UNKNOWN
     Route: 064

REACTIONS (2)
  - Foetal exposure during pregnancy [Unknown]
  - Small for dates baby [Recovering/Resolving]

NARRATIVE: CASE EVENT DATE: 20170626
